FAERS Safety Report 16697297 (Version 1)
Quarter: 2019Q3

REPORT INFORMATION
  Report Type: Spontaneous
  Country: FR (occurrence: FR)
  Receive Date: 20190813
  Receipt Date: 20190813
  Transmission Date: 20191004
  Serious: Yes (Hospitalization)
  Sender: FDA-Public Use
  Company Number: FR-PFIZER INC-2019342362

PATIENT
  Age: 31 Year
  Sex: Female
  Weight: 50 kg

DRUGS (2)
  1. DALACINE [Suspect]
     Active Substance: CLINDAMYCIN
     Indication: GARDNERELLA INFECTION
     Dosage: 1.5 G, 1X/DAY
     Route: 048
     Dates: start: 20190228, end: 20190529
  2. FLAGYL [Suspect]
     Active Substance: METRONIDAZOLE\METRONIDAZOLE HYDROCHLORIDE
     Indication: GARDNERELLA INFECTION
     Dosage: 1000 MG, UNK
     Route: 067
     Dates: start: 20190228, end: 20190529

REACTIONS (5)
  - Diarrhoea [Recovered/Resolved]
  - Off label use [Unknown]
  - Rash erythematous [Recovered/Resolved]
  - Product use issue [Unknown]
  - Face oedema [Recovered/Resolved]

NARRATIVE: CASE EVENT DATE: 20190228
